FAERS Safety Report 15360990 (Version 3)
Quarter: 2018Q4

REPORT INFORMATION
  Report Type: Report from Study
  Country: US (occurrence: US)
  Receive Date: 20180907
  Receipt Date: 20181228
  Transmission Date: 20190204
  Serious: No
  Sender: FDA-Public Use
  Company Number: US-SA-2018SA250983

PATIENT
  Age: 68 Year
  Sex: Female

DRUGS (26)
  1. VALTREX [Concomitant]
     Active Substance: VALACYCLOVIR HYDROCHLORIDE
  2. CRANBERRY PLUS [Concomitant]
  3. BIOTIN [Concomitant]
     Active Substance: BIOTIN
  4. NUVIGIL [Concomitant]
     Active Substance: ARMODAFINIL
  5. TOPROL XL [Concomitant]
     Active Substance: METOPROLOL SUCCINATE
  6. ZINC. [Concomitant]
     Active Substance: ZINC
  7. FLOMAX RELIEF [Concomitant]
     Active Substance: TAMSULOSIN HYDROCHLORIDE
  8. POTASSIUM CHLORIDE. [Concomitant]
     Active Substance: POTASSIUM CHLORIDE
  9. PROZAC [Concomitant]
     Active Substance: FLUOXETINE HYDROCHLORIDE
  10. LORATADINE. [Concomitant]
     Active Substance: LORATADINE
  11. NEXIUM 24HR [Concomitant]
     Active Substance: ESOMEPRAZOLE MAGNESIUM
  12. TRAZODONE [Concomitant]
     Active Substance: TRAZODONE HYDROCHLORIDE
  13. ADIPEX-P [Concomitant]
     Active Substance: PHENTERMINE HYDROCHLORIDE
  14. CYMBALTA [Concomitant]
     Active Substance: DULOXETINE HYDROCHLORIDE
  15. ESTRADIOL. [Concomitant]
     Active Substance: ESTRADIOL
  16. MOBIC [Concomitant]
     Active Substance: MELOXICAM
  17. LASIX M [Concomitant]
     Active Substance: FUROSEMIDE
  18. MYRBETRIQ [Concomitant]
     Active Substance: MIRABEGRON
  19. GRALISE [Concomitant]
     Active Substance: GABAPENTIN
  20. NORVASC [Concomitant]
     Active Substance: AMLODIPINE BESYLATE
  21. BACLOFEN. [Concomitant]
     Active Substance: BACLOFEN
  22. VITAMIN D2 [Concomitant]
     Active Substance: ERGOCALCIFEROL
  23. TERIFLUNOMIDE. [Suspect]
     Active Substance: TERIFLUNOMIDE
     Indication: MULTIPLE SCLEROSIS
     Dosage: 14 MG, QD
     Route: 048
     Dates: start: 20180801
  24. SYNTHROID [Concomitant]
     Active Substance: LEVOTHYROXINE SODIUM
  25. HYDROCHLOROTHIAZIDE. [Concomitant]
     Active Substance: HYDROCHLOROTHIAZIDE
  26. MAGNESIUM [Concomitant]
     Active Substance: MAGNESIUM

REACTIONS (14)
  - Feeling abnormal [Recovered/Resolved]
  - Pyrexia [Recovered/Resolved]
  - Mean cell volume increased [Not Recovered/Not Resolved]
  - Fatigue [Unknown]
  - Depression [Unknown]
  - Alopecia [Unknown]
  - Red blood cell count decreased [Not Recovered/Not Resolved]
  - Blood folate decreased [Not Recovered/Not Resolved]
  - Feeling abnormal [Unknown]
  - Lymphocyte count decreased [Not Recovered/Not Resolved]
  - Influenza [Recovered/Resolved]
  - Haemoglobin decreased [Not Recovered/Not Resolved]
  - White blood cell count decreased [Not Recovered/Not Resolved]
  - Pain [Recovered/Resolved]

NARRATIVE: CASE EVENT DATE: 20181203
